FAERS Safety Report 18528254 (Version 4)
Quarter: 2021Q2

REPORT INFORMATION
  Report Type: Report from Study
  Country: US (occurrence: US)
  Receive Date: 20201120
  Receipt Date: 20210514
  Transmission Date: 20210717
  Serious: Yes (Hospitalization)
  Sender: FDA-Public Use
  Company Number: US-PFIZER INC-2018-04119

PATIENT
  Age: 44 Year
  Sex: Female
  Weight: 62.1 kg

DRUGS (24)
  1. COMPAZINE [PROCHLORPERAZINE EDISYLATE] [Concomitant]
     Active Substance: PROCHLORPERAZINE EDISYLATE
     Indication: PROPHYLAXIS OF NAUSEA AND VOMITING
     Dosage: 5 MG, QID, PRN
     Route: 048
     Dates: start: 20171205
  2. ZOFRAN [Concomitant]
     Active Substance: ONDANSETRON HYDROCHLORIDE
     Indication: PROPHYLAXIS OF NAUSEA AND VOMITING
     Dosage: 8 MG, BID, PRN (ODT)
     Route: 048
     Dates: start: 20171205
  3. ZYRTEC [Concomitant]
     Active Substance: CETIRIZINE HYDROCHLORIDE
     Dosage: 10.00 MG, 1X/DAY
     Route: 048
  4. SENNA [SENNA ALEXANDRINA] [Concomitant]
     Active Substance: SENNA LEAF
     Indication: CONSTIPATION PROPHYLAXIS
     Dosage: 8.6 MG, BID, PRN
     Route: 048
     Dates: start: 20171205
  5. BENZOIN COMPOUND [ALOE AFRICANA;MYROXYLON BALSAMUM BALSAM;STYRAX BENZO [Concomitant]
     Dosage: UNK
  6. BINIMETINIB [Suspect]
     Active Substance: BINIMETINIB
     Indication: BREAST CANCER METASTATIC
     Dosage: 45 MG, 2X/DAY
     Route: 048
     Dates: start: 20180216, end: 20180403
  7. CAFFEINE. [Suspect]
     Active Substance: CAFFEINE
     Dosage: 100 MG, ONCE ON ON DAY 1, DAY 7 AND DAY 14
     Route: 048
     Dates: start: 20180118, end: 20180207
  8. TUSSIONEX PENNKINETIC [Concomitant]
     Active Substance: CHLORPHENIRAMINE\HYDROCODONE
     Indication: COUGH
     Dosage: [CHLORPHENIRAMINE POLISTIREX 10MG]/[HYDROCODONE POLISTIREX 5ML], PRN (ER)
     Route: 048
     Dates: start: 20180111
  9. GABAPENTIN. [Concomitant]
     Active Substance: GABAPENTIN
     Indication: COUGH
     Dosage: 400.00 MG, 3X/DAY
     Route: 048
     Dates: start: 20180111
  10. LOVENOX [Concomitant]
     Active Substance: ENOXAPARIN SODIUM
     Indication: THROMBOSIS PROPHYLAXIS
     Dosage: 60MG/0.6 ML, BID
     Route: 048
  11. MELOXICAM. [Concomitant]
     Active Substance: MELOXICAM
     Dosage: 7.50 MG, 1X/DAY
     Route: 048
  12. PROTONIX [Concomitant]
     Active Substance: PANTOPRAZOLE SODIUM
     Dosage: 40.00 MG, 1X/DAY
     Route: 048
  13. DEXTROMETHORPHAN [Suspect]
     Active Substance: DEXTROMETHORPHAN
     Dosage: 30 MG, ONCE ON ON DAY 1, DAY 7 AND DAY 14
     Route: 048
     Dates: start: 20180118, end: 20180207
  14. OXYCODONE [Concomitant]
     Active Substance: OXYCODONE
     Indication: CHEST PAIN
     Dosage: 10 MG, PRN, Q4H
     Route: 048
     Dates: start: 20171205
  15. CLARITIN [Concomitant]
     Active Substance: LORATADINE
     Dosage: UNK
  16. MIRALAX [Concomitant]
     Active Substance: POLYETHYLENE GLYCOL 3350
     Indication: CONSTIPATION
     Dosage: 17 G, QD, PRN
     Route: 048
  17. MIDAZOLAM. [Suspect]
     Active Substance: MIDAZOLAM
     Dosage: 2 MG, ONCE ON DAY 1, DAY 7 AND DAY 14
     Route: 048
     Dates: start: 20180118, end: 20180207
  18. HYDROXYZINE [Concomitant]
     Active Substance: HYDROXYZINE HYDROCHLORIDE
     Dosage: 25 MG, QHS
     Route: 048
  19. ENCORAFENIB [Suspect]
     Active Substance: ENCORAFENIB
     Indication: BREAST CANCER METASTATIC
     Dosage: 450.00 MG, 1X/DAY
     Route: 048
     Dates: start: 20180216, end: 20180403
  20. OXYCONTIN [Concomitant]
     Active Substance: OXYCODONE HYDROCHLORIDE
     Indication: CHEST PAIN
     Dosage: 10 MG, BID, PRN
     Route: 048
     Dates: start: 20171205
  21. TESSALON [Concomitant]
     Active Substance: BENZONATATE
     Indication: COUGH
     Dosage: 200.00 MG, 3X/DAY
     Route: 048
     Dates: start: 20181205
  22. LOSARTAN. [Suspect]
     Active Substance: LOSARTAN
     Dosage: 50 MG, ONCE ON DAY 1, DAY 7 AND DAY 14
     Route: 048
     Dates: start: 20180118, end: 20180207
  23. OMEPRAZOLE. [Suspect]
     Active Substance: OMEPRAZOLE
     Dosage: 20 MG, ONCE ON DAY 1, DAY 7 AND DAY 14
     Route: 048
     Dates: start: 20180118, end: 20180207
  24. DEXAMETHASONE. [Concomitant]
     Active Substance: DEXAMETHASONE
     Indication: DYSPNOEA
     Dosage: 4 MG, BID, PRN
     Route: 048
     Dates: start: 20171205

REACTIONS (4)
  - Dehydration [Recovered/Resolved]
  - Hypotension [Recovered/Resolved]
  - Transaminases increased [Recovered/Resolved]
  - Pyrexia [Recovered/Resolved]

NARRATIVE: CASE EVENT DATE: 20180403
